FAERS Safety Report 4971658-3 (Version None)
Quarter: 2006Q2

REPORT INFORMATION
  Report Type: 
  Country: None (occurrence: None)
  Receive Date: 20060413
  Receipt Date: 20060404
  Transmission Date: 20061013
  Serious: Yes (Hospitalization)
  Sender: FDA-Public Use
  Company Number: PHRM2006FR01235

PATIENT
  Age: 78 Year
  Sex: Male
  Weight: 63 kg

DRUGS (5)
  1. HEMIGOXINE NATIVELLE [Suspect]
     Dosage: 0.125 MG/DAY
     Route: 048
  2. LASILIX [Suspect]
     Dosage: 250 MG/DAY
     Route: 048
  3. PREVISCAN [Concomitant]
     Route: 048
  4. CARDENSIEL [Concomitant]
     Route: 048
  5. ESIDRIX [Suspect]
     Dosage: 25 MG/DAY
     Route: 048

REACTIONS (11)
  - ATRIAL FIBRILLATION [None]
  - C-REACTIVE PROTEIN INCREASED [None]
  - CARDIAC MURMUR [None]
  - CARDIOACTIVE DRUG LEVEL INCREASED [None]
  - CARDIOMEGALY [None]
  - DILATATION ATRIAL [None]
  - DRUG INTERACTION [None]
  - FEMORAL ARTERIAL STENOSIS [None]
  - HEART SOUNDS ABNORMAL [None]
  - HYPOKALAEMIA [None]
  - OVERDOSE [None]
